FAERS Safety Report 12465250 (Version 1)
Quarter: 2016Q2

REPORT INFORMATION
  Report Type: Spontaneous
  Country: US (occurrence: US)
  Receive Date: 20160614
  Receipt Date: 20160614
  Transmission Date: 20160815
  Serious: No
  Sender: FDA-Public Use
  Company Number: US-BAYER-2016-110512

PATIENT
  Age: 62 Year
  Sex: Female
  Weight: 81.63 kg

DRUGS (4)
  1. CLARITIN-D 24 HOUR [Suspect]
     Active Substance: LORATADINE\PSEUDOEPHEDRINE SULFATE
  2. SYNTHROID [Concomitant]
     Active Substance: LEVOTHYROXINE SODIUM
  3. CLARITIN-D 12 HOUR [Suspect]
     Active Substance: LORATADINE\PSEUDOEPHEDRINE SULFATE
     Dosage: UNK
     Dates: end: 2015
  4. CLARITIN [Suspect]
     Active Substance: LORATADINE

REACTIONS (4)
  - Product use issue [None]
  - Palpitations [None]
  - Drug effect incomplete [None]
  - Drug ineffective [None]
